FAERS Safety Report 26159155 (Version 1)
Quarter: 2025Q4

REPORT INFORMATION
  Report Type: Report from Study
  Country: US (occurrence: US)
  Receive Date: 20251216
  Receipt Date: 20251216
  Transmission Date: 20260118
  Serious: Yes (Other)
  Sender: ABBVIE
  Company Number: US-ABBVIE-6589597

PATIENT
  Sex: Male

DRUGS (1)
  1. RESTASIS [Suspect]
     Active Substance: CYCLOSPORINE
     Indication: Dry eye
     Dosage: PATIENT ROA: OPHTHALMIC
     Route: 065
     Dates: start: 2020

REACTIONS (6)
  - Eye excision [Unknown]
  - Glaucoma [Unknown]
  - Ocular discomfort [Unknown]
  - Dry eye [Unknown]
  - Asthenopia [Unknown]
  - Eye disorder [Unknown]
